FAERS Safety Report 10197783 (Version 1)
Quarter: 2014Q2

REPORT INFORMATION
  Report Type: Spontaneous
  Country: US (occurrence: US)
  Receive Date: 20140527
  Receipt Date: 20140527
  Transmission Date: 20141212
  Serious: No
  Sender: FDA-Public Use
  Company Number: US-PFIZER INC-2014142086

PATIENT
  Age: 29 Year
  Sex: Male
  Weight: 136.5 kg

DRUGS (2)
  1. VIAGRA [Suspect]
     Indication: ERECTILE DYSFUNCTION
     Dosage: 40 MG, AS NEEDED
     Dates: start: 2013
  2. IBUPROFEN [Concomitant]
     Indication: HEADACHE
     Dosage: 200 MG, AS NEEDED

REACTIONS (1)
  - Drug ineffective [Unknown]
